FAERS Safety Report 8814761 (Version 1)
Quarter: 2012Q4

REPORT INFORMATION
  Report Type: 
  Country: CH (occurrence: CH)
  Receive Date: 20120928
  Receipt Date: 20120928
  Transmission Date: 20130627
  Serious: Yes (Hospitalization)
  Sender: FDA-Public Use
  Company Number: CH-PFIZER INC-2012237419

PATIENT
  Age: 45 Year
  Sex: Male

DRUGS (2)
  1. CHAMPIX [Suspect]
     Indication: SMOKING CESSATION THERAPY
     Dosage: 0.5 mg, 1x/day, in the morning
     Route: 048
     Dates: start: 20120830, end: 20120831
  2. CHAMPIX [Suspect]
     Dosage: 0.5 mg, 2x/day (morning and evening)
     Route: 048
     Dates: start: 20120901, end: 20120903

REACTIONS (9)
  - Myocarditis [Recovered/Resolved]
  - Chest pain [Recovered/Resolved]
  - Malaise [Recovered/Resolved]
  - Electrocardiogram abnormal [Recovering/Resolving]
  - Troponin T increased [Recovering/Resolving]
  - Pyrexia [Recovered/Resolved]
  - Aspartate aminotransferase increased [Recovered/Resolved]
  - Alanine aminotransferase increased [Recovered/Resolved]
  - Viral infection [Unknown]
